FAERS Safety Report 16652525 (Version 1)
Quarter: 2019Q3

REPORT INFORMATION
  Report Type: Spontaneous
  Country: GB (occurrence: GB)
  Receive Date: 20190731
  Receipt Date: 20190731
  Transmission Date: 20191004
  Serious: Yes (Hospitalization)
  Sender: FDA-Public Use
  Company Number: GB-PFIZER INC-2019318888

PATIENT
  Age: 34 Year
  Sex: Female
  Weight: 66.5 kg

DRUGS (4)
  1. MICROGYNON [ETHINYLESTRADIOL;LEVONORGESTREL] [Concomitant]
     Active Substance: ETHINYL ESTRADIOL\LEVONORGESTREL
  2. TOFACITINIB CITRATE [Suspect]
     Active Substance: TOFACITINIB CITRATE
     Indication: COLITIS ULCERATIVE
     Dosage: 20 MG, DAILY
     Route: 048
     Dates: start: 20190515, end: 20190620
  3. MEZAVANT XL [Concomitant]
     Active Substance: MESALAMINE
  4. CETIRIZINE [Concomitant]
     Active Substance: CETIRIZINE HYDROCHLORIDE

REACTIONS (2)
  - Colitis ulcerative [Recovering/Resolving]
  - Treatment failure [Recovering/Resolving]

NARRATIVE: CASE EVENT DATE: 20190613
